FAERS Safety Report 6188166-7 (Version None)
Quarter: 2009Q2

REPORT INFORMATION
  Report Type: 
  Country: None (occurrence: None)
  Receive Date: 20090513
  Receipt Date: 20090330
  Transmission Date: 20091009
  Serious: No
  Sender: FDA-Public Use
  Company Number: A0770982A

PATIENT
  Sex: Female

DRUGS (2)
  1. DYNACIRC CR [Suspect]
     Dosage: 5MG PER DAY
     Route: 048
  2. DYNACIRC CR [Suspect]
     Indication: DRUG USE FOR UNKNOWN INDICATION

REACTIONS (2)
  - DRUG INEFFECTIVE [None]
  - OEDEMA PERIPHERAL [None]
